FAERS Safety Report 6945267-0 (Version None)
Quarter: 2010Q3

REPORT INFORMATION
  Report Type: 
  Country: None (occurrence: None)
  Receive Date: 20100827
  Receipt Date: 20100713
  Transmission Date: 20110219
  Serious: No
  Sender: FDA-Public Use
  Company Number: US-KINGPHARMUSA00001-K201000892

PATIENT
  Age: 73 Year
  Sex: Female
  Weight: 85.261 kg

DRUGS (4)
  1. FLECTOR [Suspect]
     Indication: TENDON PAIN
     Dosage: 1 PATCH, SINGLE
     Route: 061
     Dates: start: 20100712, end: 20100712
  2. FLECTOR [Suspect]
     Indication: TENDONITIS
     Dosage: 1/2 PATCH, QD
     Route: 061
     Dates: start: 20100713, end: 20100715
  3. METFORMIN [Concomitant]
     Indication: TYPE 1 DIABETES MELLITUS
     Dosage: UNK
     Route: 048
  4. GLIPIZIDE [Concomitant]
     Indication: TYPE 1 DIABETES MELLITUS
     Dosage: UNK
     Route: 048

REACTIONS (1)
  - BLOOD GLUCOSE INCREASED [None]
